FAERS Safety Report 8047112-1 (Version None)
Quarter: 2012Q1

REPORT INFORMATION
  Report Type: 
  Country: None (occurrence: None)
  Receive Date: 20120116
  Receipt Date: 20120109
  Transmission Date: 20120608
  Serious: Yes (Other)
  Sender: FDA-Public Use
  Company Number: US-BRISTOL-MYERS SQUIBB COMPANY-16266512

PATIENT
  Age: 51 Year
  Sex: Female
  Weight: 61 kg

DRUGS (3)
  1. AROMASIN [Suspect]
     Dosage: COATED TABS
     Dates: start: 20111201
  2. CORGARD [Suspect]
     Indication: VENTRICULAR TACHYCARDIA
  3. ATIVAN [Suspect]
     Indication: VENTRICULAR TACHYCARDIA

REACTIONS (5)
  - FUNGAL INFECTION [None]
  - MUSCLE SPASMS [None]
  - ABDOMINAL DISTENSION [None]
  - BURNING SENSATION [None]
  - BREAST CANCER [None]
